FAERS Safety Report 11450335 (Version 1)
Quarter: 2015Q3

REPORT INFORMATION
  Report Type: Spontaneous
  Country: US (occurrence: US)
  Receive Date: 20150903
  Receipt Date: 20150903
  Transmission Date: 20151125
  Serious: No
  Sender: FDA-Public Use
  Company Number: US-ROCHE-1036782

PATIENT
  Sex: Male

DRUGS (5)
  1. PEGASYS [Suspect]
     Active Substance: PEGINTERFERON ALFA-2A
     Indication: HEPATITIS C
     Route: 058
     Dates: start: 20111214
  2. XANAX [Concomitant]
     Active Substance: ALPRAZOLAM
     Indication: ANXIETY
     Route: 065
  3. RIBASPHERE [Suspect]
     Active Substance: RIBAVIRIN
     Indication: HEPATITIS C
     Dosage: 600/400 MG
     Route: 048
  4. LYRICA [Concomitant]
     Active Substance: PREGABALIN
     Route: 065
  5. ELAVIL [Concomitant]
     Active Substance: AMITRIPTYLINE HYDROCHLORIDE
     Dosage: BED TIME
     Route: 065

REACTIONS (20)
  - Irritability [Unknown]
  - Back pain [Not Recovered/Not Resolved]
  - Accidental overdose [Unknown]
  - Ill-defined disorder [Unknown]
  - Dry mouth [Unknown]
  - Unevaluable event [Unknown]
  - Mental disorder [Unknown]
  - Memory impairment [Unknown]
  - Headache [Unknown]
  - Nausea [Unknown]
  - Dysphonia [Unknown]
  - Oropharyngeal pain [Unknown]
  - Mass [Unknown]
  - Aphonia [Unknown]
  - Asthenia [Unknown]
  - Fatigue [Unknown]
  - Anxiety [Not Recovered/Not Resolved]
  - Malaise [Unknown]
  - Pain [Unknown]
  - Poor quality drug administered [Unknown]
